FAERS Safety Report 5049453-9 (Version None)
Quarter: 2006Q3

REPORT INFORMATION
  Report Type: 
  Country: None (occurrence: None)
  Receive Date: 20060711
  Receipt Date: 20060711
  Transmission Date: 20061208
  Serious: Yes (Hospitalization)
  Sender: FDA-Public Use
  Company Number: None

PATIENT
  Sex: Female
  Weight: 55.9 kg

DRUGS (3)
  1. ERBITUX [Suspect]
     Indication: BREAST CANCER METASTATIC
     Dosage: 405 MG   EVERY WEEK  IV
     Route: 042
     Dates: start: 20060621
  2. CARBOPLATIN [Suspect]
     Dosage: 174 MG   EVERY WEEK X 3WK   IV
     Route: 042
     Dates: start: 20060621
  3. MORPHINE [Concomitant]

REACTIONS (1)
  - PAIN IN EXTREMITY [None]
